FAERS Safety Report 4844963-9 (Version None)
Quarter: 2005Q4

REPORT INFORMATION
  Report Type: 
  Country: None (occurrence: None)
  Receive Date: 20051205
  Receipt Date: 20050506
  Transmission Date: 20060501
  Serious: Yes (Death)
  Sender: FDA-Public Use
  Company Number: US-MERCK-0505USA00929

PATIENT
  Age: 70 Year
  Sex: Male
  Weight: 71 kg

DRUGS (3)
  1. VIOXX [Suspect]
     Indication: ARTHRITIS
     Route: 048
     Dates: start: 20000614, end: 20030502
  2. SKELAXIN [Concomitant]
     Route: 065
  3. ULTRAM [Concomitant]
     Route: 065

REACTIONS (4)
  - ABDOMINAL DISCOMFORT [None]
  - CARDIOVASCULAR DISORDER [None]
  - MUSCULOSKELETAL DISCOMFORT [None]
  - MYOSITIS [None]
